FAERS Safety Report 7928097-2 (Version None)
Quarter: 2011Q4

REPORT INFORMATION
  Report Type: 
  Country: None (occurrence: None)
  Receive Date: 20111118
  Receipt Date: 20111110
  Transmission Date: 20120403
  Serious: Yes (Other)
  Sender: FDA-Public Use
  Company Number: JP-GLAXOSMITHKLINE-B0762190A

PATIENT
  Sex: Male
  Weight: 60 kg

DRUGS (13)
  1. PREDNISOLONE [Concomitant]
     Indication: IDIOPATHIC THROMBOCYTOPENIC PURPURA
     Dosage: 15MG PER DAY
     Route: 048
     Dates: end: 20101226
  2. PROMACTA [Suspect]
     Indication: IDIOPATHIC THROMBOCYTOPENIC PURPURA
     Dosage: 12.5MG PER DAY
     Route: 048
     Dates: start: 20101220
  3. IMURAN [Suspect]
     Indication: IDIOPATHIC THROMBOCYTOPENIC PURPURA
     Dosage: 50MG PER DAY
     Route: 048
     Dates: end: 20110123
  4. GASMOTIN [Concomitant]
     Dosage: 15MG PER DAY
     Route: 048
  5. FLUCONAZOLE [Concomitant]
     Dosage: 100MG PER DAY
     Route: 048
  6. ALDACTONE [Concomitant]
     Dosage: 25MG PER DAY
     Route: 048
  7. PREDNISOLONE [Concomitant]
     Dosage: 5MG PER DAY
     Route: 048
     Dates: start: 20110111
  8. PREDNISOLONE [Concomitant]
     Dosage: 10MG PER DAY
     Route: 048
     Dates: start: 20101227, end: 20110110
  9. CANDESARTAN CILEXETIL [Concomitant]
     Dosage: 4MG PER DAY
     Route: 048
  10. SULFAMETHOXAZOLE AND TRIMETHOPRIM [Concomitant]
     Dosage: 1IUAX PER DAY
     Route: 048
     Dates: start: 20101220
  11. GASCON [Concomitant]
     Dosage: 120MG PER DAY
     Route: 048
  12. POTASSIUM GLUCONATE TAB [Concomitant]
     Dosage: 15MG PER DAY
     Route: 048
  13. PROTECADIN [Concomitant]
     Dosage: 10MG PER DAY
     Route: 048

REACTIONS (1)
  - LIVER DISORDER [None]
